FAERS Safety Report 25867375 (Version 1)
Quarter: 2025Q4

REPORT INFORMATION
  Report Type: Spontaneous
  Country: US (occurrence: US)
  Receive Date: 20251001
  Receipt Date: 20251001
  Transmission Date: 20260117
  Serious: Yes (Hospitalization, Other)
  Sender: ASTELLAS
  Company Number: US-ASTELLAS-2025-AER-053258

PATIENT
  Age: 63 Year
  Sex: Female

DRUGS (7)
  1. TACROLIMUS [Suspect]
     Active Substance: TACROLIMUS
     Indication: Lung transplant
     Dosage: TARGET TROUGH 6-8 NG/ML
     Route: 065
  2. TACROLIMUS [Suspect]
     Active Substance: TACROLIMUS
     Dosage: GOAL WAS INCREASED (TARGET TROUGH 8-10)
     Route: 065
  3. BELATACEPT [Suspect]
     Active Substance: BELATACEPT
     Indication: Lung transplant
     Dosage: DISCONTINUED
     Route: 042
  4. PREDNISONE [Suspect]
     Active Substance: PREDNISONE
     Indication: Lung transplant
     Dosage: REPLACE WITH EQUIVALENT DOSING OF METHYLPREDNISOLONE
     Route: 048
  5. PREDNISONE [Suspect]
     Active Substance: PREDNISONE
     Route: 048
  6. PREDNISONE [Suspect]
     Active Substance: PREDNISONE
     Dosage: TAPER, EVERY 3 DAYS UNTIL BACK TO MAINTENANCE DOSE
     Route: 048
  7. HYDROXYCHLOROQUINE [Concomitant]
     Active Substance: HYDROXYCHLOROQUINE
     Indication: Rheumatoid arthritis
     Route: 065

REACTIONS (5)
  - Oesophageal candidiasis [Recovering/Resolving]
  - Leukopenia [Recovering/Resolving]
  - Disease progression [Recovering/Resolving]
  - Hypogammaglobulinaemia [Recovering/Resolving]
  - Oesophageal ulcer [Recovered/Resolved]
